FAERS Safety Report 16286753 (Version 2)
Quarter: 2019Q2

REPORT INFORMATION
  Report Type: Report from Study
  Country: US (occurrence: US)
  Receive Date: 20190508
  Receipt Date: 20190524
  Transmission Date: 20190711
  Serious: Yes (Hospitalization)
  Sender: FDA-Public Use
  Company Number: PHHO2019US004688

PATIENT
  Sex: Female

DRUGS (3)
  1. PACLITAXEL. [Suspect]
     Active Substance: PACLITAXEL
     Indication: FALLOPIAN TUBE NEOPLASM
     Dosage: UNK
     Route: 042
     Dates: start: 20181023, end: 20190404
  2. INC424A [Suspect]
     Active Substance: RUXOLITINIB
     Indication: FALLOPIAN TUBE NEOPLASM
     Dosage: UNK
     Route: 048
     Dates: start: 20181023, end: 20190410
  3. CARBOPLATIN. [Suspect]
     Active Substance: CARBOPLATIN
     Indication: FALLOPIAN TUBE NEOPLASM
     Dosage: UNK
     Route: 042
     Dates: start: 20181023, end: 20190321

REACTIONS (2)
  - Anaemia [Recovered/Resolved]
  - Hyponatraemia [Recovered/Resolved]

NARRATIVE: CASE EVENT DATE: 20190415
